FAERS Safety Report 4955388-X (Version None)
Quarter: 2006Q1

REPORT INFORMATION
  Report Type: 
  Country: None (occurrence: None)
  Receive Date: 20060322
  Receipt Date: 20060309
  Transmission Date: 20060701
  Serious: No
  Sender: FDA-Public Use
  Company Number: HQWYE710308FEB06

PATIENT
  Sex: 0

DRUGS (3)
  1. EFFEXOR XR [Suspect]
  2. ZYRTEC [Concomitant]
  3. SINGULAIR [Concomitant]

REACTIONS (5)
  - AGGRESSION [None]
  - FEELING ABNORMAL [None]
  - HEADACHE [None]
  - INSOMNIA [None]
  - SELF-INJURIOUS IDEATION [None]
